FAERS Safety Report 25703804 (Version 2)
Quarter: 2025Q3

REPORT INFORMATION
  Report Type: Report from Study
  Country: US (occurrence: US)
  Receive Date: 20250820
  Receipt Date: 20250908
  Transmission Date: 20251020
  Serious: No
  Sender: SUNOVION
  Company Number: US-SUMITOMO PHARMA SWITZERLAND GMBH-2025SPA010414

PATIENT
  Age: 81 Year
  Sex: Male

DRUGS (12)
  1. ORGOVYX [Suspect]
     Active Substance: RELUGOLIX
     Indication: Prostate cancer
     Route: 048
     Dates: start: 20250708, end: 20250708
  2. ORGOVYX [Suspect]
     Active Substance: RELUGOLIX
     Route: 048
  3. ATORVASTATIN [Concomitant]
     Active Substance: ATORVASTATIN
  4. DONEPEZIL [Concomitant]
     Active Substance: DONEPEZIL
  5. DUTASTERIDE [Concomitant]
     Active Substance: DUTASTERIDE
  6. ELIQUIS [Concomitant]
     Active Substance: APIXABAN
  7. LORATADINE [Concomitant]
     Active Substance: LORATADINE
  8. NABUMETONE [Concomitant]
     Active Substance: NABUMETONE
  9. METOPROLOL SUCCINATE [Concomitant]
     Active Substance: METOPROLOL SUCCINATE
  10. TAMSULOSIN [Concomitant]
     Active Substance: TAMSULOSIN
  11. ERLEADA [Concomitant]
     Active Substance: APALUTAMIDE
  12. LOPERAMIDE [Concomitant]
     Active Substance: LOPERAMIDE

REACTIONS (3)
  - Cold flash [Unknown]
  - Hot flush [Unknown]
  - Fatigue [Unknown]
